FAERS Safety Report 22339406 (Version 9)
Quarter: 2025Q3

REPORT INFORMATION
  Report Type: Spontaneous
  Country: CA (occurrence: CA)
  Receive Date: 20230518
  Receipt Date: 20250714
  Transmission Date: 20251021
  Serious: Yes (Death, Other)
  Sender: PFIZER
  Company Number: CA-PFIZER INC-202200580910

PATIENT
  Age: 60 Year
  Sex: Female

DRUGS (2)
  1. RUXIENCE [Suspect]
     Active Substance: RITUXIMAB-PVVR
     Indication: Rheumatoid arthritis
     Route: 042
     Dates: start: 20221206
  2. METHOTREXATE [Concomitant]
     Active Substance: METHOTREXATE

REACTIONS (7)
  - Death [Fatal]
  - Ovarian cancer recurrent [Unknown]
  - Pain in extremity [Not Recovered/Not Resolved]
  - Musculoskeletal stiffness [Not Recovered/Not Resolved]
  - Condition aggravated [Not Recovered/Not Resolved]
  - Pain [Unknown]
  - Off label use [Unknown]

NARRATIVE: CASE EVENT DATE: 20221206
